FAERS Safety Report 21306318 (Version 6)
Quarter: 2025Q3

REPORT INFORMATION
  Report Type: Report from Study
  Country: US (occurrence: US)
  Receive Date: 20220908
  Receipt Date: 20250923
  Transmission Date: 20251020
  Serious: Yes (Hospitalization, Other)
  Sender: NOVARTIS
  Company Number: US-NOVARTISPH-NVSC2022US199681

PATIENT
  Sex: Female

DRUGS (51)
  1. MAYZENT [Suspect]
     Active Substance: SIPONIMOD
     Indication: Relapsing multiple sclerosis
     Route: 065
     Dates: start: 2019
  2. MAYZENT [Suspect]
     Active Substance: SIPONIMOD
     Route: 065
     Dates: start: 2020, end: 202208
  3. MAYZENT [Suspect]
     Active Substance: SIPONIMOD
     Dosage: 1 MG, QD
     Route: 048
     Dates: start: 20200710, end: 202212
  4. MAYZENT [Suspect]
     Active Substance: SIPONIMOD
     Dosage: 4 DOSAGE FORM, QD
     Route: 065
  5. MELOXICAM [Concomitant]
     Active Substance: MELOXICAM
     Indication: Product used for unknown indication
     Dosage: 1 DOSAGE FORM, QD (15 MG TABLET)
     Route: 048
  6. TYLENOL ARTHRITIS PAIN [Concomitant]
     Active Substance: ACETAMINOPHEN
     Indication: Product used for unknown indication
     Route: 065
  7. OMEGA-3 FATTY ACIDS [Concomitant]
     Active Substance: OMEGA-3 FATTY ACIDS
     Indication: Product used for unknown indication
     Dosage: 2 DOSAGE FORM, QD (300 MG CAPSULE)
     Route: 048
  8. FISH OIL\OMEGA-3 FATTY ACIDS [Concomitant]
     Active Substance: FISH OIL\OMEGA-3 FATTY ACIDS
     Indication: Product used for unknown indication
     Dosage: 2 DOSAGE FORM, QD (1000 MG CAPSULE)
     Route: 048
  9. ADVIL [Concomitant]
     Active Substance: IBUPROFEN
     Indication: Product used for unknown indication
     Route: 065
  10. CHONDROITIN SULFATE (BOVINE)\GLUCOSAMINE HYDROCHLORIDE [Concomitant]
     Active Substance: CHONDROITIN SULFATE (BOVINE)\GLUCOSAMINE HYDROCHLORIDE
     Indication: Product used for unknown indication
     Dosage: UNK, QD (1-4 BY MOUTH) (500/400 MG CAPSULE)
     Route: 048
  11. VITAMIN D3 [Concomitant]
     Active Substance: CHOLECALCIFEROL
     Indication: Product used for unknown indication
     Dosage: 1 DOSAGE FORM, QD (125 UG CAPSULE)
     Route: 048
  12. VITAMIN D3 [Concomitant]
     Active Substance: CHOLECALCIFEROL
     Dosage: 1 DOSAGE FORM, QD (5000 UNITS TABLET)
     Route: 048
  13. MINERALS\VITAMINS [Concomitant]
     Active Substance: MINERALS\VITAMINS
     Indication: Product used for unknown indication
     Dosage: 2 DOSAGE FORM, QD (1250 MG TABLET)
     Route: 048
  14. HERBALS\TURMERIC [Concomitant]
     Active Substance: HERBALS\TURMERIC
     Indication: Product used for unknown indication
     Dosage: 1 DOSAGE FORM, QD (400 MG CAPSULE)
     Route: 048
  15. MAGNESIUM [Concomitant]
     Active Substance: MAGNESIUM
     Indication: Product used for unknown indication
     Dosage: 241.3 MG, QD (400 MG TABLET)
     Route: 065
  16. MAGNESIUM [Concomitant]
     Active Substance: MAGNESIUM
     Dosage: 1 DOSAGE FORM, QD (400 MG TABLET)
     Route: 048
     Dates: start: 20220913
  17. MELATONIN [Concomitant]
     Active Substance: MELATONIN
     Indication: Product used for unknown indication
     Dosage: 5 MG, QD (TABLET)
     Route: 065
  18. MELATONIN [Concomitant]
     Active Substance: MELATONIN
     Dosage: 1 DOSAGE FORM, QD (3 MG) (AT BEDTIME)
     Route: 048
     Dates: start: 20220913
  19. VITAMIN B6 [Concomitant]
     Active Substance: PYRIDOXINE HYDROCHLORIDE
     Indication: Product used for unknown indication
     Dosage: 1 DOSAGE FORM, QD (100 MG TABLET)
     Route: 048
  20. TROSPIUM [Concomitant]
     Active Substance: TROSPIUM
     Indication: Product used for unknown indication
     Dosage: 1 DOSAGE FORM, QD (PROLONGED-RELEASE CAPSULE 60 MG)
     Route: 048
  21. VITAMIN B12 [Concomitant]
     Active Substance: CYANOCOBALAMIN
     Indication: Product used for unknown indication
     Dosage: 1 DOSAGE FORM, QD (LOZENGE 2500 UG)
     Route: 048
  22. VITAMIN B12 [Concomitant]
     Active Substance: CYANOCOBALAMIN
     Dosage: 1 DOSAGE FORM, QD (1000 UG TABLET)
     Route: 048
  23. DULOXETINE [Concomitant]
     Active Substance: DULOXETINE
     Indication: Product used for unknown indication
     Dosage: 3 DOSAGE FORM, BID (30 MG) (TAKE 2 CAPSULES BY MOUTH EVERY MORNING AND 1 CAPSULE BY MOUTH EVERY EVEN
     Route: 048
  24. DULOXETINE [Concomitant]
     Active Substance: DULOXETINE
     Dosage: 1 DOSAGE FORM, QD (60 MG CAPSULE)
     Route: 048
     Dates: start: 20220913
  25. DULOXETINE [Concomitant]
     Active Substance: DULOXETINE
     Dosage: 1 DOSAGE FORM, QD (30 MG)
     Route: 048
     Dates: start: 20220913
  26. NITROFURANTOIN MONOHYDRATE [Concomitant]
     Active Substance: NITROFURANTOIN MONOHYDRATE
     Indication: Product used for unknown indication
     Dosage: 1 DOSAGE FORM, BID (CAPSULE 100 MG)
     Route: 048
  27. BACLOFEN [Concomitant]
     Active Substance: BACLOFEN
     Indication: Product used for unknown indication
     Dosage: 1 DOSAGE FORM, TID (20 MG) (TABLET)
     Route: 048
  28. BACLOFEN [Concomitant]
     Active Substance: BACLOFEN
     Dosage: 1 DOSAGE FORM, TID (10 MG) (TABLET)
     Route: 048
     Dates: start: 20220913
  29. BACLOFEN [Concomitant]
     Active Substance: BACLOFEN
     Dosage: 20 MG, TID (10 MG) (TABLET)
     Route: 048
  30. BACLOFEN [Concomitant]
     Active Substance: BACLOFEN
     Dosage: 20 MG, TID (20 MG) (TABLET)
     Route: 048
  31. LOPERAMIDE [Concomitant]
     Active Substance: LOPERAMIDE
     Indication: Product used for unknown indication
     Dosage: 1 DOSAGE FORM, QD (2 MG TALET)
     Route: 048
  32. LOPERAMIDE [Concomitant]
     Active Substance: LOPERAMIDE
     Dosage: 2 DOSAGE FORM, QD (AFTER EACH LOOSE STOOL, MAX 4 TABS PER 24 HOURS)
     Route: 048
  33. TECFIDERA [Concomitant]
     Active Substance: DIMETHYL FUMARATE
     Indication: Product used for unknown indication
     Route: 065
  34. TYSABRI [Concomitant]
     Active Substance: NATALIZUMAB
     Indication: Product used for unknown indication
     Route: 065
     Dates: start: 201911
  35. CHOLECALCIFEROL [Concomitant]
     Active Substance: CHOLECALCIFEROL
     Indication: Product used for unknown indication
     Dosage: 1 DOSAGE FORM, QD (50 UG TABLET)
     Route: 048
     Dates: start: 20220913
  36. CYANOCOBALAMIN [Concomitant]
     Active Substance: CYANOCOBALAMIN
     Indication: Product used for unknown indication
     Dosage: 1 DOSAGE FORM, QD (1000 UG TABLET)
     Route: 048
     Dates: start: 20220913
  37. SENNA [Concomitant]
     Active Substance: SENNOSIDES
     Indication: Product used for unknown indication
     Dosage: 2 DOSAGE FORM, QD (8.6 MG TABLET)
     Route: 048
     Dates: start: 20220913
  38. TRAZODONE HYDROCHLORIDE [Concomitant]
     Active Substance: TRAZODONE HYDROCHLORIDE
     Indication: Product used for unknown indication
     Dosage: 0.5 DOSAGE FORM, QD (50 MG TABLET)
     Route: 048
  39. MINERALS\VITAMINS [Concomitant]
     Active Substance: MINERALS\VITAMINS
     Indication: Product used for unknown indication
     Dosage: 1 DOSAGE FORM, BID (CHEWABLE TABLET 500-100 MG)
     Route: 048
  40. MINERALS\VITAMINS [Concomitant]
     Active Substance: MINERALS\VITAMINS
     Dosage: 1000 MG, QD
     Route: 048
  41. VITAMIN D NOS [Concomitant]
     Active Substance: CHOLECALCIFEROL\ERGOCALCIFEROL
     Indication: Product used for unknown indication
     Dosage: UNK, BID (500-400 MG) (TABLET)
     Route: 065
  42. VITAMIN D NOS [Concomitant]
     Active Substance: CHOLECALCIFEROL\ERGOCALCIFEROL
     Dosage: 1000 MG, QD
     Route: 048
  43. DALFAMPRIDINE [Concomitant]
     Active Substance: DALFAMPRIDINE
     Indication: Product used for unknown indication
     Dosage: 1 DOSAGE FORM, QD (TABLET)
     Route: 048
  44. ESTRADIOL [Concomitant]
     Active Substance: ESTRADIOL
     Indication: Product used for unknown indication
     Route: 065
  45. ESTRADIOL [Concomitant]
     Active Substance: ESTRADIOL
     Route: 065
  46. KRILL OIL [Concomitant]
     Active Substance: DIETARY SUPPLEMENT\KRILL OIL
     Indication: Product used for unknown indication
     Dosage: 300 MG, QD
     Route: 048
  47. MAGNESIUM ACETATE [Concomitant]
     Active Substance: MAGNESIUM ACETATE
     Indication: Product used for unknown indication
     Dosage: 1 DOSAGE FORM, QD (TABLET)
     Route: 048
  48. BACTROBAN [Concomitant]
     Active Substance: MUPIROCIN CALCIUM
     Indication: Product used for unknown indication
     Dosage: 1 DOSAGE FORM, TID (APPLY 1 APPLICATION TOPICALLY TO AFFECTED AREAS)
     Route: 050
  49. ZOFRAN [Concomitant]
     Active Substance: ONDANSETRON HYDROCHLORIDE
     Indication: Product used for unknown indication
     Route: 065
  50. OXYCODONE [Concomitant]
     Active Substance: OXYCODONE
     Indication: Product used for unknown indication
     Route: 048
  51. XIIDRA [Concomitant]
     Active Substance: LIFITEGRAST
     Indication: Product used for unknown indication
     Route: 065

REACTIONS (33)
  - Hepatic enzyme increased [Recovered/Resolved]
  - Dysstasia [Unknown]
  - Muscular weakness [Unknown]
  - Fall [Recovering/Resolving]
  - Aortic aneurysm [Recovered/Resolved]
  - Haemorrhage [Recovered/Resolved]
  - Haemoperitoneum [Unknown]
  - Hepatitis [Unknown]
  - Gastrointestinal haemorrhage [Unknown]
  - Failure to thrive [Unknown]
  - Arrhythmia [Unknown]
  - Sepsis [Unknown]
  - Ischaemic stroke [Unknown]
  - Haemorrhagic stroke [Unknown]
  - COVID-19 [Unknown]
  - Hypoaesthesia [Unknown]
  - Asthenia [Unknown]
  - Pollakiuria [Unknown]
  - Arthralgia [Unknown]
  - Ataxia [Unknown]
  - Paraesthesia [Unknown]
  - Back pain [Unknown]
  - Vitamin B complex deficiency [Unknown]
  - Constipation [Unknown]
  - Insomnia [Unknown]
  - Depression [Unknown]
  - Localised oedema [Unknown]
  - Obesity [Unknown]
  - Mobility decreased [Unknown]
  - Pain [Unknown]
  - Dizziness [Unknown]
  - Electrolyte imbalance [Unknown]
  - Blood pressure increased [Unknown]
